FAERS Safety Report 21202999 (Version 1)
Quarter: 2022Q3

REPORT INFORMATION
  Report Type: Spontaneous
  Country: US (occurrence: US)
  Receive Date: 20220811
  Receipt Date: 20220811
  Transmission Date: 20221026
  Serious: No
  Sender: FDA-Public Use
  Company Number: US-OTSUKA-2021_030920

PATIENT
  Age: 14 Year
  Sex: Female
  Weight: 54.43 kg

DRUGS (3)
  1. REXULTI [Suspect]
     Active Substance: BREXPIPRAZOLE
     Indication: Depression
     Dosage: 1 MG, QD
     Route: 048
     Dates: start: 20210902
  2. REXULTI [Suspect]
     Active Substance: BREXPIPRAZOLE
     Indication: Anxiety
  3. FLUOXETINE [Concomitant]
     Active Substance: FLUOXETINE HYDROCHLORIDE
     Indication: Product used for unknown indication
     Dosage: 40 UNK
     Route: 065

REACTIONS (2)
  - Product use issue [Unknown]
  - Product use in unapproved indication [Unknown]

NARRATIVE: CASE EVENT DATE: 20210902
